FAERS Safety Report 21338177 (Version 1)
Quarter: 2022Q3

REPORT INFORMATION
  Report Type: Spontaneous
  Country: US (occurrence: US)
  Receive Date: 20220915
  Receipt Date: 20220915
  Transmission Date: 20221027
  Serious: Yes (Other)
  Sender: FDA-Public Use
  Company Number: US-NOVARTISPH-NVSC2022US207317

PATIENT
  Age: 8 Year
  Sex: Male

DRUGS (8)
  1. METHOTREXATE [Suspect]
     Active Substance: METHOTREXATE
     Indication: Neoplasm
     Dosage: UNK, CYCLIC
     Route: 065
  2. VINCRISTINE [Suspect]
     Active Substance: VINCRISTINE
     Indication: Neoplasm
     Dosage: UNK, CYCLIC
     Route: 065
  3. ETOPOSIDE [Suspect]
     Active Substance: ETOPOSIDE
     Indication: Neoplasm
     Dosage: UNK, CYCLIC
     Route: 065
  4. CISPLATIN [Suspect]
     Active Substance: CISPLATIN
     Indication: Neoplasm
     Dosage: UNK, CYCLIC
     Route: 065
  5. MANNITOL [Suspect]
     Active Substance: MANNITOL
     Indication: Neoplasm
     Dosage: UNK, CYCLIC
     Route: 065
  6. CYCLOPHOSPHAMIDE [Suspect]
     Active Substance: CYCLOPHOSPHAMIDE
     Indication: Neoplasm
     Dosage: UNK, CYCLIC
     Route: 065
  7. MESNA [Suspect]
     Active Substance: MESNA
     Indication: Neoplasm
     Dosage: UNK, CYCLIC
     Route: 065
  8. LEUCOVORIN [Suspect]
     Active Substance: LEUCOVORIN
     Indication: Neoplasm
     Dosage: UNK, CYCLIC
     Route: 065

REACTIONS (7)
  - Enterobacter bacteraemia [Recovered/Resolved]
  - Klebsiella bacteraemia [Recovered/Resolved]
  - Colitis [Recovered/Resolved]
  - Mucosal inflammation [Unknown]
  - Nausea [Unknown]
  - Feeding disorder [Unknown]
  - Product use in unapproved indication [Unknown]
